FAERS Safety Report 19072254 (Version 4)
Quarter: 2021Q2

REPORT INFORMATION
  Report Type: Spontaneous
  Country: JP (occurrence: JP)
  Receive Date: 20210330
  Receipt Date: 20210525
  Transmission Date: 20210717
  Serious: Yes (Other)
  Sender: FDA-Public Use
  Company Number: JP-UCBSA-2021014065

PATIENT
  Age: 87 Year
  Sex: Female
  Weight: 40.6 kg

DRUGS (9)
  1. E KEPPRA [Suspect]
     Active Substance: LEVETIRACETAM
     Dosage: 3000 MILLIGRAM, ONCE DAILY (QD)
     Route: 041
  2. THEOPHYLLINE [Suspect]
     Active Substance: THEOPHYLLINE ANHYDROUS
     Indication: STATUS EPILEPTICUS
     Dosage: UNKNOWN DOSE
  3. THEOPHYLLINE [Suspect]
     Active Substance: THEOPHYLLINE ANHYDROUS
     Indication: ASTHMA
     Dosage: 400 MILLIGRAM, ONCE DAILY (QD)
     Route: 048
  4. CLOPIDOGREL SULFATE [Concomitant]
     Active Substance: CLOPIDOGREL BISULFATE
     Indication: STATUS EPILEPTICUS
     Dosage: 75 MILLIGRAM
  5. DIAZEPAM. [Concomitant]
     Active Substance: DIAZEPAM
     Indication: STATUS EPILEPTICUS
     Dosage: 5 MILLIGRAM
  6. CILOSTAZOL. [Concomitant]
     Active Substance: CILOSTAZOL
     Indication: STATUS EPILEPTICUS
     Dosage: 200 MILLIGRAM
     Route: 050
  7. EDARAVONE [Concomitant]
     Active Substance: EDARAVONE
     Indication: STATUS EPILEPTICUS
     Dosage: UNKNOWN DOSE
  8. E KEPPRA [Suspect]
     Active Substance: LEVETIRACETAM
     Indication: GENERALISED TONIC-CLONIC SEIZURE
     Dosage: 1000 MILLIGRAM
     Route: 041
  9. FOSPHENYTOIN SODIUM. [Concomitant]
     Active Substance: FOSPHENYTOIN SODIUM
     Indication: STATUS EPILEPTICUS
     Dosage: 1000 MILLIGRAM

REACTIONS (2)
  - Seizure [Unknown]
  - Off label use [Unknown]
